FAERS Safety Report 5383133-5 (Version None)
Quarter: 2007Q3

REPORT INFORMATION
  Report Type: 
  Country: None (occurrence: None)
  Receive Date: 20070710
  Receipt Date: 20070627
  Transmission Date: 20080115
  Serious: Yes (Other)
  Sender: FDA-Public Use
  Company Number: US-ELI_LILLY_AND_COMPANY-US200706006107

PATIENT
  Age: 60 Year
  Sex: Male

DRUGS (1)
  1. HUMALOG MIX 50/50 [Suspect]
     Indication: DIABETES MELLITUS

REACTIONS (6)
  - BLINDNESS [None]
  - BLOOD GLUCOSE DECREASED [None]
  - BLOOD GLUCOSE INCREASED [None]
  - EYE DISORDER [None]
  - HYPERHIDROSIS [None]
  - VISUAL DISTURBANCE [None]
